FAERS Safety Report 7410410-6 (Version None)
Quarter: 2011Q2

REPORT INFORMATION
  Report Type: 
  Country: None (occurrence: None)
  Receive Date: 20110412
  Receipt Date: 20080915
  Transmission Date: 20111010
  Serious: Yes (Hospitalization)
  Sender: FDA-Public Use
  Company Number: DE-GENENTECH-316492

PATIENT
  Age: 82 Year
  Sex: Female

DRUGS (1)
  1. LUCENTIS [Suspect]
     Indication: MACULAR DEGENERATION
     Dosage: UNK
     Route: 031
     Dates: start: 20080519

REACTIONS (5)
  - SINUS DISORDER [None]
  - INFLUENZA [None]
  - JAW DISORDER [None]
  - CATARACT [None]
  - DRUG HYPERSENSITIVITY [None]
